FAERS Safety Report 16093207 (Version 2)
Quarter: 2019Q2

REPORT INFORMATION
  Report Type: Spontaneous
  Country: FR (occurrence: FR)
  Receive Date: 20190320
  Receipt Date: 20190622
  Transmission Date: 20190711
  Serious: Yes (Death, Life-Threatening)
  Sender: FDA-Public Use
  Company Number: FR-ACCORD-113482

PATIENT
  Age: 71 Year
  Sex: Female
  Weight: 51 kg

DRUGS (6)
  1. DOXYCYCLINE. [Concomitant]
     Active Substance: DOXYCYCLINE
     Indication: ACNE
     Route: 048
  2. METHYLPREDNISOLONE MYLAN [Suspect]
     Active Substance: METHYLPREDNISOLONE
     Indication: PROPHYLAXIS OF NAUSEA AND VOMITING
     Route: 041
     Dates: start: 20181017, end: 20181017
  3. OXALIPLATINE ACCORD [Suspect]
     Active Substance: OXALIPLATIN
     Indication: ADENOCARCINOMA OF COLON
     Dosage: 50 MG/10 ML
     Route: 041
     Dates: start: 20181017, end: 20181017
  4. ONDANSETRON ACCORD [Suspect]
     Active Substance: ONDANSETRON
     Indication: PROPHYLAXIS OF NAUSEA AND VOMITING
     Route: 041
     Dates: start: 20181017, end: 20181017
  5. CALCIUM LEVOFOLINATE ZENTIVA [Suspect]
     Active Substance: LEVOLEUCOVORIN CALCIUM
     Indication: CHEMOTHERAPY TOXICITY ATTENUATION
     Route: 041
     Dates: start: 20181017, end: 20181017
  6. EMEND [Suspect]
     Active Substance: APREPITANT
     Indication: PROPHYLAXIS OF NAUSEA AND VOMITING
     Dosage: 125 MG
     Route: 048
     Dates: start: 20181017, end: 20181017

REACTIONS (4)
  - Oropharyngeal discomfort [Recovered/Resolved]
  - Tongue oedema [Recovered/Resolved]
  - Oedema peripheral [Recovered/Resolved]
  - Drug hypersensitivity [Recovered/Resolved]

NARRATIVE: CASE EVENT DATE: 20181017
